FAERS Safety Report 9381891 (Version 1)
Quarter: 2013Q3

REPORT INFORMATION
  Report Type: Report from Study
  Country: BR (occurrence: BR)
  Receive Date: 20130703
  Receipt Date: 20130703
  Transmission Date: 20140515
  Serious: Yes (Death, Life-Threatening, Hospitalization, Other)
  Sender: FDA-Public Use
  Company Number: US-ASTRAZENECA-2008UW23147

PATIENT
  Age: 15823 Day
  Sex: Male

DRUGS (51)
  1. ZD6474 [Suspect]
     Indication: MEDULLARY THYROID CANCER
     Route: 048
     Dates: start: 20070815, end: 20071107
  2. ZD6474 [Suspect]
     Indication: MEDULLARY THYROID CANCER
     Route: 048
     Dates: start: 20071108, end: 20071126
  3. ZD6474 [Suspect]
     Indication: MEDULLARY THYROID CANCER
     Route: 048
     Dates: start: 20071127, end: 20080128
  4. ZD6474 [Suspect]
     Indication: MEDULLARY THYROID CANCER
     Route: 048
     Dates: start: 20080129, end: 20081018
  5. LEVOTHYROXINE [Concomitant]
     Indication: THYROID HORMONE REPLACEMENT THERAPY
     Route: 048
  6. METOCLOPRAMIDE [Concomitant]
     Indication: DYSPEPSIA
     Route: 048
     Dates: end: 20080220
  7. DEXCHLORPHENIRAMINE [Concomitant]
     Indication: RASH
     Dosage: 6.0
     Route: 048
     Dates: start: 20071010, end: 20071113
  8. CLONAZEPAM [Concomitant]
     Indication: INSOMNIA
     Dosage: 2.0
     Route: 048
     Dates: start: 20071030
  9. AAS [Concomitant]
     Indication: PROPHYLAXIS
     Dosage: 100.0
     Route: 048
  10. PROPRANOLOL [Concomitant]
     Indication: PALPITATIONS
     Route: 048
     Dates: end: 20070829
  11. PROPRANOLOL [Concomitant]
     Indication: TACHYCARDIA
     Route: 048
     Dates: end: 20070829
  12. PROPRANOLOL [Concomitant]
     Indication: PALPITATIONS
     Route: 048
     Dates: start: 20070830, end: 20070912
  13. PROPRANOLOL [Concomitant]
     Indication: TACHYCARDIA
     Route: 048
     Dates: start: 20070830, end: 20070912
  14. PROPRANOLOL [Concomitant]
     Indication: PALPITATIONS
     Route: 048
     Dates: start: 20081008
  15. PROPRANOLOL [Concomitant]
     Indication: TACHYCARDIA
     Route: 048
     Dates: start: 20081008
  16. PREDNISONE [Concomitant]
     Indication: RASH
     Dosage: 40.0
     Route: 048
     Dates: start: 20071113, end: 20071204
  17. PREDNISONE [Concomitant]
     Indication: RASH
     Dosage: 20.0
     Route: 048
     Dates: start: 20071205
  18. TRYPTANOL [Concomitant]
     Indication: DEPRESSION
     Dosage: 50.0
     Route: 048
     Dates: start: 20080121, end: 20080128
  19. TRYPTANOL [Concomitant]
     Indication: DEPRESSION
     Dosage: 75.0
     Route: 048
     Dates: start: 20080128
  20. INSULIN [Concomitant]
     Indication: DIABETES PROPHYLAXIS
     Route: 042
     Dates: start: 20081018, end: 20081020
  21. RANITIDINE [Concomitant]
     Indication: HAEMORRHAGE PROPHYLAXIS
     Dosage: 150
     Route: 042
     Dates: start: 20081020
  22. CLOPIDOGREL [Concomitant]
     Indication: THROMBOSIS PROPHYLAXIS
     Dosage: 300
     Route: 048
     Dates: start: 20081018, end: 20081020
  23. PRAVASTATIN [Concomitant]
     Indication: CORONARY ARTERY INSUFFICIENCY
     Dosage: 80
     Route: 048
     Dates: start: 20081018, end: 20081019
  24. ISOSORBIDE [Concomitant]
     Indication: CORONARY ARTERY INSUFFICIENCY
     Dosage: 80
     Route: 060
     Dates: start: 20081018, end: 20081018
  25. ENOXAPARIN [Concomitant]
     Indication: ANTICOAGULANT THERAPY
     Dosage: 160
     Route: 058
     Dates: start: 20081018, end: 20081020
  26. AMIODARONE [Concomitant]
     Indication: ARRHYTHMIA
     Route: 042
     Dates: start: 20081018, end: 20081018
  27. FUROSEMIDE [Concomitant]
     Indication: RENAL FAILURE ACUTE
     Route: 042
     Dates: start: 20081018, end: 20081020
  28. ADENOSINE [Concomitant]
     Indication: SCAN MYOCARDIAL PERFUSION
  29. HYDROCORTISONE [Concomitant]
     Indication: PROPHYLAXIS
  30. ALPRAZOLAM [Concomitant]
     Indication: SEDATION
  31. CEFEPIME [Concomitant]
     Indication: URINARY TRACT INFECTION
  32. CEFEPIME [Concomitant]
     Indication: RESPIRATORY TRACT INFECTION
  33. AZITHROMYCIN [Concomitant]
     Indication: ANTIBIOTIC PROPHYLAXIS
  34. TRIMETHOPRIM [Concomitant]
     Indication: ANTIBIOTIC PROPHYLAXIS
  35. SULFAMETHOXAZOLE [Concomitant]
     Indication: ANTIBIOTIC PROPHYLAXIS
  36. N-ACETYL CYSTEINE [Concomitant]
     Indication: PROPHYLAXIS
  37. ATROPINE [Concomitant]
     Indication: CARDIAC ARREST
  38. ADRENALINE [Concomitant]
     Indication: CARDIAC FAILURE ACUTE
  39. SODIUM BICARBONATE [Concomitant]
     Indication: CARDIAC ARREST
  40. MIDAZOLAM [Concomitant]
     Indication: SEDATION
  41. ALOPURINOL [Concomitant]
     Indication: PROPHYLAXIS
  42. HEPARIN [Concomitant]
     Indication: THROMBOSIS
  43. DOBUTAMINE [Concomitant]
     Indication: CARDIAC FAILURE ACUTE
  44. CAPTOPRIL [Concomitant]
     Indication: CARDIAC FAILURE
  45. MIDAZOLAN [Concomitant]
     Indication: PROPHYLAXIS
  46. DIGOXINE [Concomitant]
     Indication: CARDIAC FAILURE
  47. FENTANYL [Concomitant]
     Indication: SEDATION
  48. DIAZEPAN [Concomitant]
     Indication: PROPHYLAXIS
  49. DIPIRONE [Concomitant]
     Indication: PAIN PROPHYLAXIS
  50. SPIRONOLACTONE [Concomitant]
     Indication: CARDIAC FAILURE
  51. OMEPRAZOLE [Concomitant]

REACTIONS (2)
  - Cardiac failure acute [Fatal]
  - Arrhythmia [Fatal]
